FAERS Safety Report 21599530 (Version 2)
Quarter: 2023Q1

REPORT INFORMATION
  Report Type: Spontaneous
  Country: US (occurrence: US)
  Receive Date: 20221115
  Receipt Date: 20230106
  Transmission Date: 20230418
  Serious: No
  Sender: FDA-Public Use
  Company Number: US-BAUSCH-BL-2022-024998

PATIENT
  Age: 76 Year
  Sex: Female
  Weight: 77.180 kg

DRUGS (5)
  1. APLENZIN [Suspect]
     Active Substance: BUPROPION HYDROBROMIDE
     Indication: Major depression
     Route: 048
     Dates: start: 20221027, end: 20221106
  2. APLENZIN [Suspect]
     Active Substance: BUPROPION HYDROBROMIDE
     Indication: Anxiety disorder
     Route: 048
     Dates: start: 20221107
  3. VALIUM [Concomitant]
     Active Substance: DIAZEPAM
     Indication: Product used for unknown indication
     Route: 048
  4. TRAMADOL [Concomitant]
     Active Substance: TRAMADOL
     Indication: Product used for unknown indication
     Route: 048
  5. ATENOLOL [Concomitant]
     Active Substance: ATENOLOL
     Indication: Product used for unknown indication
     Route: 048

REACTIONS (1)
  - Therapeutic product effect incomplete [Unknown]

NARRATIVE: CASE EVENT DATE: 20221027
